FAERS Safety Report 8607000 (Version 3)
Quarter: 2014Q3

REPORT INFORMATION
  Report Type: Spontaneous
  Country: US (occurrence: US)
  Receive Date: 20120611
  Receipt Date: 20140708
  Transmission Date: 20150326
  Serious: Yes (Hospitalization, Other)
  Sender: FDA-Public Use
  Company Number: US-ASTRAZENECA-2012SE15981

PATIENT
  Age: 63 Year
  Sex: Male
  Weight: 100.7 kg

DRUGS (32)
  1. NEXIUM [Suspect]
     Active Substance: ESOMEPRAZOLE MAGNESIUM
     Indication: GASTROOESOPHAGEAL REFLUX DISEASE
     Dosage: ONCE, SOME TIME ON AN OCCASION TOOK TWO
     Route: 048
     Dates: start: 1995
  2. NEXIUM [Suspect]
     Active Substance: ESOMEPRAZOLE MAGNESIUM
     Indication: GASTROOESOPHAGEAL REFLUX DISEASE
     Route: 048
     Dates: start: 2001, end: 20140618
  3. PREVACID [Concomitant]
     Active Substance: LANSOPRAZOLE
  4. FOLIC ACID. [Concomitant]
     Active Substance: FOLIC ACID
     Indication: VITAMIN SUPPLEMENTATION
     Route: 048
     Dates: start: 2003
  5. KLOR CON M20 [Concomitant]
     Indication: BLOOD POTASSIUM INCREASED
     Route: 048
  6. ER PARTICLES/CRYSTALS [Concomitant]
     Dosage: AS NEEDED WITH LASIX
  7. METFORMIN [Concomitant]
     Active Substance: METFORMIN HYDROCHLORIDE
     Indication: DIABETES MELLITUS
     Route: 048
     Dates: start: 2003
  8. TAGAMENT [Concomitant]
  9. CADUET [Concomitant]
     Active Substance: AMLODIPINE BESYLATE\ATORVASTATIN CALCIUM
     Indication: BLOOD PRESSURE
     Dosage: 10-40 MG TAB 1 BY MOUTH DAILY
     Route: 048
  10. EDARBYCLOR [Concomitant]
     Active Substance: AZILSARTAN KAMEDOXOMIL\CHLORTHALIDONE
     Indication: BLOOD PRESSURE
     Dosage: 10-40 MG TAB 1 BY MOUTH DAILY
     Route: 048
  11. NEXIUM [Suspect]
     Active Substance: ESOMEPRAZOLE MAGNESIUM
     Indication: GASTROOESOPHAGEAL REFLUX DISEASE
     Route: 048
  12. PRILOSEC [Suspect]
     Active Substance: OMEPRAZOLE MAGNESIUM
     Route: 048
  13. TOPROL XL [Suspect]
     Active Substance: METOPROLOL SUCCINATE
     Indication: HYPERTENSION
     Route: 048
  14. TOPROL XL [Suspect]
     Active Substance: METOPROLOL SUCCINATE
     Indication: HYPERTENSION
     Route: 048
  15. TOPROL XL [Suspect]
     Active Substance: METOPROLOL SUCCINATE
     Indication: HYPERTENSION
     Route: 048
     Dates: start: 2003, end: 20140618
  16. ZANTAC [Concomitant]
     Active Substance: RANITIDINE HYDROCHLORIDE
  17. EDARBYCLOR [Concomitant]
     Active Substance: AZILSARTAN KAMEDOXOMIL\CHLORTHALIDONE
     Indication: BLOOD PRESSURE
     Dosage: 40\25 MG DAILY
     Dates: start: 2012
  18. ASPIRIN. [Concomitant]
     Active Substance: ASPIRIN
     Indication: ANTICOAGULANT THERAPY
     Route: 048
  19. FENOFIBRATE. [Concomitant]
     Active Substance: FENOFIBRATE
     Indication: BLOOD PRESSURE
     Route: 048
  20. FOLIC ACID. [Concomitant]
     Active Substance: FOLIC ACID
     Indication: VITAMIN SUPPLEMENTATION
     Route: 048
  21. KLOR CON M20 [Concomitant]
     Indication: BLOOD POTASSIUM INCREASED
     Route: 048
     Dates: start: 2003
  22. NOVOLIN N [Concomitant]
     Active Substance: INSULIN HUMAN
     Indication: DIABETES MELLITUS
     Dosage: 13 UNITS DAILY
     Route: 058
     Dates: start: 2012
  23. NEXIUM [Suspect]
     Active Substance: ESOMEPRAZOLE MAGNESIUM
     Indication: GASTROOESOPHAGEAL REFLUX DISEASE
     Route: 048
  24. PROTONIX [Concomitant]
     Active Substance: PANTOPRAZOLE SODIUM
  25. ASPIRIN. [Concomitant]
     Active Substance: ASPIRIN
     Indication: ANTICOAGULANT THERAPY
     Route: 048
     Dates: start: 2003
  26. NITROGLYCERIN. [Concomitant]
     Active Substance: NITROGLYCERIN
     Indication: CHEST PAIN
     Dosage: 0.4 MG  PRN
     Route: 048
     Dates: start: 2010
  27. FUROSEMIDE. [Concomitant]
     Active Substance: FUROSEMIDE
     Indication: DIURETIC THERAPY
     Route: 048
  28. FUROSEMIDE. [Concomitant]
     Active Substance: FUROSEMIDE
     Indication: DIURETIC THERAPY
     Route: 065
     Dates: start: 2003
  29. TUMS [Concomitant]
     Active Substance: CALCIUM CARBONATE
     Dates: start: 20140618
  30. PEPCID [Concomitant]
     Active Substance: FAMOTIDINE
  31. EFFIENT [Concomitant]
     Active Substance: PRASUGREL HYDROCHLORIDE
     Indication: BLOOD PRESSURE
     Route: 048
     Dates: start: 2011
  32. FENOFIBRATE. [Concomitant]
     Active Substance: FENOFIBRATE
     Indication: BLOOD PRESSURE
     Route: 048
     Dates: start: 2011

REACTIONS (25)
  - Prostatic disorder [Unknown]
  - Thrombosis in device [Unknown]
  - Gastrooesophageal reflux disease [Unknown]
  - Trigger finger [Unknown]
  - Oedema [Unknown]
  - Back injury [Unknown]
  - Myocardial infarction [Unknown]
  - Osteoporosis [Unknown]
  - Polyp [Unknown]
  - Multiple fractures [Unknown]
  - Vitamin D deficiency [Unknown]
  - Extra dose administered [Unknown]
  - Convulsion [Unknown]
  - Cardiac disorder [Unknown]
  - Limb injury [Unknown]
  - Angina pectoris [Unknown]
  - Off label use [Unknown]
  - Musculoskeletal pain [Unknown]
  - Rotator cuff syndrome [Unknown]
  - Diabetes mellitus [Unknown]
  - Weight decreased [Unknown]
  - Eye disorder [Unknown]
  - Carpal tunnel syndrome [Unknown]
  - Intentional product misuse [Unknown]
  - Obesity [Unknown]

NARRATIVE: CASE EVENT DATE: 1990
